FAERS Safety Report 15302176 (Version 1)
Quarter: 2018Q3

REPORT INFORMATION
  Report Type: Spontaneous
  Country: US (occurrence: US)
  Receive Date: 20180821
  Receipt Date: 20180821
  Transmission Date: 20181010
  Serious: Yes (Other)
  Sender: FDA-Public Use
  Company Number: US-TARO-2018TAR00437

PATIENT
  Sex: Female
  Weight: 81.63 kg

DRUGS (5)
  1. UNSPECIFIED THYROID MEDICATION [Concomitant]
     Active Substance: UNSPECIFIED INGREDIENT
  2. UNSPECIFIED SUPPLEMENTS [Concomitant]
  3. WARFARIN SODIUM TABLETS USP 2.5MG [Suspect]
     Active Substance: WARFARIN SODIUM
     Indication: MITRAL VALVE REPLACEMENT
     Dosage: (^2.5 PILLS, 3.5 PILLS, SOMETIMES UP TO 5 PILLS^)  1X/DAY
     Route: 048
     Dates: start: 2008
  4. UNSPECIFIED FIBROMYALGIA MEDICATION [Concomitant]
  5. UNSPECIFIED DIURETIC [Concomitant]
     Active Substance: UNSPECIFIED INGREDIENT

REACTIONS (12)
  - Thyroid hormones decreased [Not Recovered/Not Resolved]
  - Contusion [Not Recovered/Not Resolved]
  - Dizziness [Not Recovered/Not Resolved]
  - Weight increased [Recovering/Resolving]
  - Pain [Recovering/Resolving]
  - Performance status decreased [Not Recovered/Not Resolved]
  - Vitamin D decreased [Not Recovered/Not Resolved]
  - Drug hypersensitivity [Not Recovered/Not Resolved]
  - International normalised ratio fluctuation [Not Recovered/Not Resolved]
  - Abdominal pain upper [Recovering/Resolving]
  - Haemorrhage [Recovering/Resolving]
  - Cortisol decreased [Not Recovered/Not Resolved]

NARRATIVE: CASE EVENT DATE: 2015
